FAERS Safety Report 8214844-1 (Version None)
Quarter: 2012Q1

REPORT INFORMATION
  Report Type: 
  Country: None (occurrence: None)
  Receive Date: 20120316
  Receipt Date: 20120308
  Transmission Date: 20120608
  Serious: Yes (Hospitalization)
  Sender: FDA-Public Use
  Company Number: US-SANOFI-AVENTIS-2011SA008298

PATIENT
  Age: 77 Year
  Sex: Male
  Weight: 86 kg

DRUGS (13)
  1. BETA BLOCKING AGENTS [Concomitant]
     Indication: HEART RATE
     Dates: start: 20010911
  2. LANOXIN [Concomitant]
  3. LISINOPRIL [Concomitant]
  4. METFORMIN HCL [Concomitant]
  5. MULTIVITAMIN [Concomitant]
  6. DIGOXIN [Concomitant]
     Indication: HEART RATE
     Dates: start: 20090922
  7. VERAPAMIL HYDROCHLORIDE [Concomitant]
     Indication: HEART RATE
     Dates: start: 20010911
  8. DRONEDARONE HCL [Suspect]
     Indication: ATRIAL FIBRILLATION
     Route: 048
     Dates: start: 20101021, end: 20110203
  9. ATENOLOL [Concomitant]
  10. FUROSEMIDE [Concomitant]
  11. PRAVACHOL [Concomitant]
  12. GLYBURIDE [Concomitant]
  13. WARFARIN SODIUM [Concomitant]
     Dosage: 3.5 MG WEEKLY

REACTIONS (3)
  - TACHYCARDIA [None]
  - PERITONEAL HAEMORRHAGE [None]
  - RENAL CANCER [None]
